FAERS Safety Report 5340502-7 (Version None)
Quarter: 2007Q2

REPORT INFORMATION
  Report Type: 
  Country: None (occurrence: None)
  Receive Date: 20070531
  Receipt Date: 20070524
  Transmission Date: 20071010
  Serious: Yes (Hospitalization)
  Sender: FDA-Public Use
  Company Number: CHWYE720224MAY07

PATIENT
  Age: 37 Year
  Sex: Female

DRUGS (17)
  1. EFFEXOR [Suspect]
     Dates: start: 20060901, end: 20070115
  2. EFFEXOR [Interacting]
     Route: 048
     Dates: start: 20070116, end: 20070123
  3. EFFEXOR [Interacting]
     Route: 048
     Dates: start: 20070124, end: 20070202
  4. EFFEXOR [Interacting]
     Route: 048
     Dates: start: 20070203, end: 20070209
  5. LORAZEPAM [Concomitant]
     Route: 048
     Dates: start: 20070101
  6. LITHIUM CARBONATE [Interacting]
     Route: 048
     Dates: start: 20060113, end: 20061122
  7. LITHIUM CARBONATE [Interacting]
     Route: 048
     Dates: start: 20061123, end: 20061129
  8. LITHIUM CARBONATE [Interacting]
     Route: 048
     Dates: start: 20061130, end: 20070123
  9. LITHIUM CARBONATE [Interacting]
     Route: 048
     Dates: start: 20070124, end: 20070131
  10. ABILIFY [Interacting]
     Route: 048
     Dates: start: 20060929, end: 20070114
  11. ABILIFY [Interacting]
     Route: 048
     Dates: start: 20070115, end: 20070118
  12. HALDOL [Interacting]
     Route: 048
     Dates: start: 20070115, end: 20070118
  13. ZYPREXA [Interacting]
     Route: 048
     Dates: start: 20060601, end: 20060915
  14. ZYPREXA [Interacting]
     Route: 048
     Dates: start: 20060916, end: 20070114
  15. ZYPREXA [Interacting]
     Route: 048
     Dates: start: 20070115, end: 20070122
  16. ZYPREXA [Interacting]
     Route: 048
     Dates: start: 20070123, end: 20070225
  17. ZYPREXA [Interacting]
     Route: 048
     Dates: start: 20070226, end: 20070312

REACTIONS (2)
  - DRUG INTERACTION [None]
  - TREMOR [None]
